FAERS Safety Report 4519239-X (Version None)
Quarter: 2004Q4

REPORT INFORMATION
  Report Type: 
  Country: None (occurrence: None)
  Receive Date: 20041201
  Receipt Date: 20041117
  Transmission Date: 20050328
  Serious: Yes (Other)
  Sender: FDA-Public Use
  Company Number: 8008072

PATIENT
  Age: 19 Year
  Sex: Female

DRUGS (4)
  1. KEPPRA [Suspect]
     Indication: EPILEPSY
     Dosage: 2000 MG/D
     Dates: start: 20040701, end: 20041026
  2. KEPPRA [Suspect]
     Indication: EPILEPSY
     Dosage: 2000MG/D
     Dates: start: 20041101
  3. TOPIRMATE [Suspect]
     Indication: EPILEPSY
     Dosage: 100MG/D
     Dates: end: 20041026
  4. TOPIRMATE [Suspect]
     Indication: EPILEPSY
     Dosage: 100MG/D
     Dates: start: 20041101

REACTIONS (3)
  - BLOOD CREATINE PHOSPHOKINASE INCREASED [None]
  - DRUG WITHDRAWAL CONVULSIONS [None]
  - GRAND MAL CONVULSION [None]
